FAERS Safety Report 17110102 (Version 2)
Quarter: 2020Q1

REPORT INFORMATION
  Report Type: Spontaneous
  Country: US (occurrence: US)
  Receive Date: 20191204
  Receipt Date: 20200121
  Transmission Date: 20200409
  Serious: No
  Sender: FDA-Public Use
  Company Number: US-009507513-1911USA007215

PATIENT
  Age: 19 Year
  Sex: Female
  Weight: 63.04 kg

DRUGS (4)
  1. NEXPLANON [Suspect]
     Active Substance: ETONOGESTREL
     Indication: CONTRACEPTION
     Dosage: 1 IMPLANT (68MG/ ONCE)
     Route: 023
     Dates: start: 20191115, end: 20191123
  2. NEXPLANON [Suspect]
     Active Substance: ETONOGESTREL
     Indication: MENSTRUAL CYCLE MANAGEMENT
  3. FLUOXETINE [Concomitant]
     Active Substance: FLUOXETINE HYDROCHLORIDE
     Indication: DEPRESSION
     Dosage: 40 MILLIGRAM
     Route: 048
     Dates: start: 20191115
  4. LORAZEPAM. [Concomitant]
     Active Substance: LORAZEPAM
     Indication: ANXIETY
     Dosage: 0.5 MILLIGRAM, AS NEEDED
     Route: 048
     Dates: start: 20191029

REACTIONS (7)
  - Device expulsion [Recovered/Resolved]
  - Skin ulcer [Unknown]
  - Product use in unapproved indication [Unknown]
  - Complication of device insertion [Recovered/Resolved]
  - Wrong technique in product usage process [Unknown]
  - Device difficult to use [Recovered/Resolved]
  - Product quality issue [Unknown]

NARRATIVE: CASE EVENT DATE: 201911
